FAERS Safety Report 6642993-8 (Version None)
Quarter: 2010Q1

REPORT INFORMATION
  Report Type: 
  Country: None (occurrence: None)
  Receive Date: 20100319
  Receipt Date: 20100309
  Transmission Date: 20100710
  Serious: Yes (Hospitalization)
  Sender: FDA-Public Use
  Company Number: A0850855A

PATIENT
  Sex: Female

DRUGS (2)
  1. TYKERB [Suspect]
     Route: 048
  2. CAPECITABINE [Suspect]
     Route: 065

REACTIONS (2)
  - ELECTROCARDIOGRAM CHANGE [None]
  - PALPITATIONS [None]
